FAERS Safety Report 23936601 (Version 2)
Quarter: 2024Q3

REPORT INFORMATION
  Report Type: Spontaneous
  Country: US (occurrence: US)
  Receive Date: 20240604
  Receipt Date: 20240816
  Transmission Date: 20241017
  Serious: No
  Sender: SANOFI AVENTIS
  Company Number: US-SA-SAC20240530000158

PATIENT
  Age: 18 Year
  Sex: Female

DRUGS (1)
  1. DUPIXENT [Suspect]
     Active Substance: DUPILUMAB
     Indication: Eosinophilic oesophagitis
     Dosage: 300 MG, QW
     Route: 058
     Dates: start: 202405

REACTIONS (5)
  - Injection site urticaria [Recovered/Resolved]
  - Muscle spasms [Unknown]
  - Diarrhoea [Unknown]
  - Malaise [Unknown]
  - Eye disorder [Unknown]

NARRATIVE: CASE EVENT DATE: 20240101
